FAERS Safety Report 17492534 (Version 2)
Quarter: 2020Q2

REPORT INFORMATION
  Report Type: Spontaneous
  Country: US (occurrence: US)
  Receive Date: 20200304
  Receipt Date: 20200401
  Transmission Date: 20200713
  Serious: No
  Sender: FDA-Public Use
  Company Number: US-ASTRAZENECA-2020SE30369

PATIENT
  Sex: Male
  Weight: 111.1 kg

DRUGS (1)
  1. BYDUREON BCISE [Suspect]
     Active Substance: EXENATIDE
     Indication: TYPE 2 DIABETES MELLITUS
     Route: 058
     Dates: start: 201903

REACTIONS (5)
  - Injection site bruising [Not Recovered/Not Resolved]
  - Injection site induration [Recovered/Resolved]
  - Drug delivery system malfunction [Unknown]
  - Injection site pain [Not Recovered/Not Resolved]
  - Device leakage [Unknown]
